FAERS Safety Report 5892494-X (Version None)
Quarter: 2008Q3

REPORT INFORMATION
  Report Type: 
  Country: None (occurrence: None)
  Receive Date: 20080923
  Receipt Date: 20080910
  Transmission Date: 20090109
  Serious: Yes (Other)
  Sender: FDA-Public Use
  Company Number: US-BAYER-200813404BCC

PATIENT
  Age: 75 Year
  Sex: Female
  Weight: 113 kg

DRUGS (5)
  1. ALEVE [Suspect]
     Indication: MUSCULOSKELETAL STIFFNESS
     Dosage: AS USED: 220 MG  UNIT DOSE: 220 MG
     Route: 048
     Dates: end: 20080813
  2. ALEVE [Suspect]
     Dosage: TOTAL DAILY DOSE: 220 MG  UNIT DOSE: 220 MG
     Route: 048
     Dates: start: 20080824
  3. LITHIUM CARBONATE [Concomitant]
  4. ZYPREXA [Concomitant]
  5. CITALOPRAM HYDROBROMIDE [Concomitant]

REACTIONS (1)
  - BLOOD PRESSURE SYSTOLIC INCREASED [None]
